FAERS Safety Report 4360003-2 (Version None)
Quarter: 2004Q2

REPORT INFORMATION
  Report Type: 
  Country: None (occurrence: None)
  Receive Date: 20040518
  Receipt Date: 20040518
  Transmission Date: 20050107
  Serious: Yes (Other)
  Sender: FDA-Public Use
  Company Number: None

PATIENT
  Sex: Male
  Weight: 61.2356 kg

DRUGS (1)
  1. ZICAM COLD REMEDY NASAL     MATRIXX INITIATIVES [Suspect]
     Indication: NASOPHARYNGITIS
     Dosage: 4 TIMES
     Route: 045
     Dates: start: 20040201, end: 20040205

REACTIONS (2)
  - DYSGEUSIA [None]
  - HYPOGEUSIA [None]
